FAERS Safety Report 19695143 (Version 3)
Quarter: 2021Q4

REPORT INFORMATION
  Report Type: Spontaneous
  Country: US (occurrence: US)
  Receive Date: 20210812
  Receipt Date: 20211228
  Transmission Date: 20220303
  Serious: No
  Sender: FDA-Public Use
  Company Number: US-PFIZER INC-2021692342

PATIENT
  Age: 38 Year
  Sex: Female

DRUGS (4)
  1. IBRANCE [Suspect]
     Active Substance: PALBOCICLIB
     Indication: Breast cancer metastatic
     Dosage: 125 MG, CYCLIC (DAILY, 3 WKS ON, 1 WK OFF)
     Dates: start: 201909, end: 202111
  2. LETROZOLE [Suspect]
     Active Substance: LETROZOLE
     Indication: Breast cancer metastatic
     Dosage: UNK
  3. XGEVA [Concomitant]
     Active Substance: DENOSUMAB
  4. ELIGARD [Concomitant]
     Active Substance: LEUPROLIDE ACETATE

REACTIONS (3)
  - Neoplasm progression [Unknown]
  - White blood cell count decreased [Unknown]
  - Fatigue [Unknown]
